FAERS Safety Report 8581540-0 (Version None)
Quarter: 2012Q3

REPORT INFORMATION
  Report Type: 
  Country: None (occurrence: None)
  Receive Date: 20120809
  Receipt Date: 20110711
  Transmission Date: 20120928
  Serious: No
  Sender: FDA-Public Use
  Company Number: US-MUTUAL PHARMACEUTICAL COMPANY, INC.-DXCY20110010

PATIENT
  Sex: Male

DRUGS (1)
  1. DOXYCYCLINE HYCLATE [Suspect]
     Indication: SINUSITIS
     Route: 048
     Dates: start: 20110620, end: 20110708

REACTIONS (1)
  - DERMATITIS HERPETIFORMIS [None]
